FAERS Safety Report 10789845 (Version 1)
Quarter: 2015Q1

REPORT INFORMATION
  Report Type: Spontaneous
  Country: US (occurrence: US)
  Receive Date: 20150212
  Receipt Date: 20150212
  Transmission Date: 20150721
  Serious: No
  Sender: FDA-Public Use
  Company Number: US-GLAXOSMITHKLINE-A1080558A

PATIENT

DRUGS (22)
  1. VENTOLIN [Suspect]
     Active Substance: ALBUTEROL SULFATE
     Indication: DYSPNOEA
     Route: 055
     Dates: start: 20140522
  2. HUMULIN R [Concomitant]
     Active Substance: INSULIN HUMAN
  3. PREMARIN [Concomitant]
     Active Substance: ESTROGENS, CONJUGATED
  4. PRAVASTATIN [Concomitant]
     Active Substance: PRAVASTATIN\PRAVASTATIN SODIUM
  5. VERAPAMIL [Concomitant]
     Active Substance: VERAPAMIL HYDROCHLORIDE
  6. GLIPIZIDE. [Concomitant]
     Active Substance: GLIPIZIDE
  7. FUROSEMIDE. [Concomitant]
     Active Substance: FUROSEMIDE
  8. LYRICA [Concomitant]
     Active Substance: PREGABALIN
  9. ALBUTEROL NEBULIZER [Concomitant]
     Active Substance: ALBUTEROL
  10. PULMICORT TURBUHALER [Concomitant]
     Active Substance: BUDESONIDE
  11. CILOSTAZOL. [Concomitant]
     Active Substance: CILOSTAZOL
  12. PLAVIX [Concomitant]
     Active Substance: CLOPIDOGREL BISULFATE
  13. BABY ASPIRIN [Concomitant]
     Active Substance: ASPIRIN
  14. VITAMIN D3 [Concomitant]
     Active Substance: CHOLECALCIFEROL
  15. MONTELUKAST [Concomitant]
     Active Substance: MONTELUKAST SODIUM
  16. GABAPENTIN. [Concomitant]
     Active Substance: GABAPENTIN
  17. SUMATRIPTAN. [Concomitant]
     Active Substance: SUMATRIPTAN
  18. SPIRONOLACTONE. [Concomitant]
     Active Substance: SPIRONOLACTONE
  19. ADVAIR HFA [Concomitant]
     Active Substance: FLUTICASONE PROPIONATE\SALMETEROL XINAFOATE
  20. STOOL SOFTENER [Concomitant]
     Active Substance: DOCUSATE CALCIUM
  21. BUPROPION [Concomitant]
     Active Substance: BUPROPION
  22. TELMISARTAN. [Concomitant]
     Active Substance: TELMISARTAN

REACTIONS (1)
  - Drug ineffective [Not Recovered/Not Resolved]
